FAERS Safety Report 6673550-5 (Version None)
Quarter: 2010Q2

REPORT INFORMATION
  Report Type: 
  Country: None (occurrence: None)
  Receive Date: 20100408
  Receipt Date: 20100330
  Transmission Date: 20101027
  Serious: Yes (Hospitalization)
  Sender: FDA-Public Use
  Company Number: US-ASTRAZENECA-2010SE09390

PATIENT
  Age: 28804 Day
  Sex: Male
  Weight: 92.1 kg

DRUGS (8)
  1. CRESTOR [Suspect]
     Indication: HYPERCHOLESTEROLAEMIA
     Route: 048
     Dates: start: 20100201, end: 20100208
  2. HYPERTENSIVE MEDICINE [Concomitant]
  3. COREG [Concomitant]
  4. LISINOPRIL [Concomitant]
  5. COMBIVENT [Concomitant]
  6. GLIPIZIDE [Concomitant]
  7. ALLOPURINOL [Concomitant]
  8. PROSCAR [Concomitant]

REACTIONS (4)
  - ASTHENIA [None]
  - HYPOTENSION [None]
  - PYREXIA [None]
  - RASH [None]
